FAERS Safety Report 21920703 (Version 1)
Quarter: 2023Q1

REPORT INFORMATION
  Report Type: Spontaneous
  Country: ES (occurrence: ES)
  Receive Date: 20230127
  Receipt Date: 20230127
  Transmission Date: 20230418
  Serious: Yes (Other)
  Sender: FDA-Public Use
  Company Number: ES-ELI_LILLY_AND_COMPANY-ES202301007192

PATIENT
  Age: 58 Year
  Sex: Female

DRUGS (3)
  1. TERIPARATIDE [Suspect]
     Active Substance: TERIPARATIDE
     Indication: Product used for unknown indication
     Dosage: UNK UNK, UNKNOWN
     Route: 065
     Dates: start: 202103
  2. COLLAGEN\TRIBASIC CALCIUM PHOSPHATE [Concomitant]
     Active Substance: COLLAGEN\TRIBASIC CALCIUM PHOSPHATE
     Indication: Product used for unknown indication
  3. CALCIFEDIOL [Concomitant]
     Active Substance: CALCIFEDIOL
     Indication: Product used for unknown indication

REACTIONS (1)
  - Dental fistula [Unknown]
